FAERS Safety Report 8978117 (Version 1)
Quarter: 2012Q4

REPORT INFORMATION
  Report Type: Spontaneous
  Country: US (occurrence: None)
  Receive Date: 20121218
  Receipt Date: 20121218
  Transmission Date: 20130627
  Serious: No
  Sender: FDA-Public Use
  Company Number: None

PATIENT

DRUGS (2)
  1. CHOLECALCIFEROL [Suspect]
  2. CHOLECALCIFEROL [Suspect]
     Dosage: TAKE ONE HALF TABLET (200 UNITS) BY MOUTH TWICE DAILY
     Route: 048
     Dates: start: 2012

REACTIONS (1)
  - Medication error [None]
